FAERS Safety Report 5398078-4 (Version None)
Quarter: 2007Q3

REPORT INFORMATION
  Report Type: 
  Country: None (occurrence: None)
  Receive Date: 20070726
  Receipt Date: 20070719
  Transmission Date: 20080115
  Serious: Yes (Hospitalization)
  Sender: FDA-Public Use
  Company Number: NO-PFIZER INC-2007058938

PATIENT
  Sex: Male

DRUGS (3)
  1. GENOTROPIN [Suspect]
     Indication: GROWTH RETARDATION
     Route: 058
  2. MELATONIN [Concomitant]
     Route: 048
  3. CONCERTA [Concomitant]
     Route: 048

REACTIONS (1)
  - PANCREATITIS ACUTE [None]
